FAERS Safety Report 23582757 (Version 1)
Quarter: 2024Q1

REPORT INFORMATION
  Report Type: Spontaneous
  Country: FR (occurrence: FR)
  Receive Date: 20240301
  Receipt Date: 20240301
  Transmission Date: 20240410
  Serious: Yes (Hospitalization, Other)
  Sender: FDA-Public Use
  Company Number: None

PATIENT

DRUGS (2)
  1. DICLOFENAC DIETHYLAMINE [Suspect]
     Active Substance: DICLOFENAC DIETHYLAMINE
     Indication: Arthralgia
     Dosage: 150 MG
     Route: 048
     Dates: start: 1989, end: 1989
  2. ASPIRIN [Suspect]
     Active Substance: ASPIRIN
     Indication: Arthralgia
     Dosage: 1500 MG
     Route: 048
     Dates: start: 1989, end: 1989

REACTIONS (9)
  - Neutropenia [Recovered/Resolved]
  - Thrombocytopenia [Recovered/Resolved]
  - Sneezing [Recovered/Resolved]
  - Pyrexia [Recovered/Resolved]
  - Rash papular [Recovered/Resolved]
  - Lacrimation increased [Recovered/Resolved]
  - Rhinorrhoea [Recovered/Resolved]
  - Chills [Recovered/Resolved]
  - Face oedema [Recovered/Resolved]

NARRATIVE: CASE EVENT DATE: 19890101
